FAERS Safety Report 10373422 (Version 1)
Quarter: 2014Q3

REPORT INFORMATION
  Report Type: Spontaneous
  Country: US (occurrence: US)
  Receive Date: 20140808
  Receipt Date: 20140808
  Transmission Date: 20150326
  Serious: No
  Sender: FDA-Public Use
  Company Number: US-BRISTOL-MYERS SQUIBB COMPANY-20602066

PATIENT
  Sex: Female

DRUGS (1)
  1. SPRYCEL (CML) TABS 50 MG [Suspect]
     Active Substance: DASATINIB
     Indication: CHRONIC MYELOID LEUKAEMIA

REACTIONS (8)
  - Musculoskeletal pain [Unknown]
  - Groin pain [Unknown]
  - Pain [Unknown]
  - Neck pain [Unknown]
  - Arthritis [Unknown]
  - Feeling hot [Unknown]
  - Joint swelling [Unknown]
  - Peripheral swelling [Recovering/Resolving]
